FAERS Safety Report 4736427-8 (Version None)
Quarter: 2005Q3

REPORT INFORMATION
  Report Type: 
  Country: None (occurrence: None)
  Receive Date: 20050804
  Receipt Date: 20050719
  Transmission Date: 20060218
  Serious: Yes (Hospitalization, Other)
  Sender: FDA-Public Use
  Company Number: A-US2004-05665

PATIENT
  Age: 73 Year
  Sex: Female

DRUGS (14)
  1. TRACLEER [Suspect]
     Indication: PULMONARY HYPERTENSION
     Dosage: SEE IMAGE
     Route: 048
     Dates: start: 20030613, end: 20030712
  2. TRACLEER [Suspect]
     Indication: PULMONARY HYPERTENSION
     Dosage: SEE IMAGE
     Route: 048
     Dates: start: 20030713, end: 20040405
  3. TRACLEER [Suspect]
     Indication: PULMONARY HYPERTENSION
     Dosage: SEE IMAGE
     Route: 048
     Dates: start: 20040507
  4. EVISTA [Concomitant]
  5. LEVOTHROID [Concomitant]
  6. SPIRONOLACTONE [Concomitant]
  7. POTASSIUM CHLORIDE [Concomitant]
  8. FUROSEMIDE (FUROSEMIDE) [Concomitant]
  9. WARFARIN SODIUM [Concomitant]
  10. HYDROCODONE (HYDROCODONE) [Concomitant]
  11. XANAX [Concomitant]
  12. COMBIVENT [Concomitant]
  13. ACIPHEX [Concomitant]
  14. VITAMIN C (ASCORBIC ACID) [Concomitant]

REACTIONS (9)
  - DIVERTICULUM INTESTINAL [None]
  - GASTROINTESTINAL HAEMORRHAGE [None]
  - IRON DEFICIENCY ANAEMIA [None]
  - OCCULT BLOOD POSITIVE [None]
  - OESOPHAGEAL CANDIDIASIS [None]
  - OESOPHAGITIS [None]
  - RECTAL ADENOMA [None]
  - RETICULOCYTE COUNT INCREASED [None]
  - VASCULITIS [None]
